FAERS Safety Report 5645680-8 (Version None)
Quarter: 2008Q1

REPORT INFORMATION
  Report Type: 
  Country: None (occurrence: None)
  Receive Date: 20080229
  Receipt Date: 20080201
  Transmission Date: 20080703
  Serious: No
  Sender: FDA-Public Use
  Company Number: US-BOEHRINGER INGELHEIM GMBH, GERMANY-2008-BP-01582BP

PATIENT
  Sex: Male

DRUGS (5)
  1. SPIRIVA [Suspect]
     Indication: CHRONIC OBSTRUCTIVE PULMONARY DISEASE
     Route: 055
     Dates: start: 20071101
  2. SPIRIVA [Suspect]
     Indication: EMPHYSEMA
  3. LIPITOR [Concomitant]
     Indication: CARDIAC OPERATION
  4. LISINOPRIL [Concomitant]
     Indication: CARDIAC OPERATION
  5. ASPIRIN [Concomitant]
     Indication: CARDIAC OPERATION

REACTIONS (1)
  - BREATH ODOUR [None]
